FAERS Safety Report 24260600 (Version 2)
Quarter: 2024Q4

REPORT INFORMATION
  Report Type: Spontaneous
  Country: DE (occurrence: DE)
  Receive Date: 20240828
  Receipt Date: 20241101
  Transmission Date: 20250115
  Serious: Yes (Hospitalization, Other)
  Sender: Harrow Health
  Company Number: DE-IMP-2023000440

PATIENT
  Age: 51 Year
  Sex: Male

DRUGS (14)
  1. DEXAMETHASONE\NEOMYCIN SULFATE\POLYMYXIN B SULFATE [Suspect]
     Active Substance: DEXAMETHASONE\NEOMYCIN SULFATE\POLYMYXIN B SULFATE
     Indication: Product used for unknown indication
     Route: 065
  2. OCREVUS [Suspect]
     Active Substance: OCRELIZUMAB
     Indication: Relapsing-remitting multiple sclerosis
     Dosage: 300 MG
     Route: 042
     Dates: start: 20190814
  3. OCREVUS [Suspect]
     Active Substance: OCRELIZUMAB
     Indication: Relapsing-remitting multiple sclerosis
     Dosage: 300 MG
     Route: 042
     Dates: start: 20190828
  4. OCREVUS [Suspect]
     Active Substance: OCRELIZUMAB
     Indication: Relapsing-remitting multiple sclerosis
     Dosage: 600 MG
     Route: 042
     Dates: start: 20200804
  5. OCREVUS [Suspect]
     Active Substance: OCRELIZUMAB
     Indication: Relapsing-remitting multiple sclerosis
     Dosage: 600 MG (THIRD MAINTENANCE DOSE)
     Route: 042
     Dates: start: 20210204
  6. OCREVUS [Suspect]
     Active Substance: OCRELIZUMAB
     Indication: Relapsing-remitting multiple sclerosis
     Dosage: 600 MG (FOURTH MAINTENANCE DOSE)
     Route: 042
     Dates: start: 20210804
  7. OCREVUS [Suspect]
     Active Substance: OCRELIZUMAB
     Indication: Relapsing-remitting multiple sclerosis
     Dosage: 600 MG (FOURTH MAINTENANCE DOSE)
     Route: 042
  8. COMIRNATY (TOZINAMERAN) [Suspect]
     Active Substance: TOZINAMERAN
     Indication: Product used for unknown indication
  9. DALFAMPRIDINE [Concomitant]
     Active Substance: DALFAMPRIDINE
     Indication: Product used for unknown indication
  10. TAMSULOSIN [Concomitant]
     Active Substance: TAMSULOSIN
     Indication: Product used for unknown indication
  11. AMLODIPINE [Concomitant]
     Active Substance: AMLODIPINE BESYLATE
     Indication: Product used for unknown indication
  12. BISOPROLOL [Concomitant]
     Active Substance: BISOPROLOL\BISOPROLOL FUMARATE
     Indication: Product used for unknown indication
  13. OMEPRAZOLE [Concomitant]
     Active Substance: OMEPRAZOLE
     Indication: Product used for unknown indication
  14. LISINOPRIL [Concomitant]
     Active Substance: LISINOPRIL
     Indication: Product used for unknown indication

REACTIONS (24)
  - Multiple sclerosis relapse [Not Recovered/Not Resolved]
  - Femoral neck fracture [Recovered/Resolved]
  - Femur fracture [Recovered/Resolved]
  - Fall [Unknown]
  - Seroma [Recovered/Resolved]
  - Hypoaesthesia [Not Recovered/Not Resolved]
  - Folliculitis [Recovering/Resolving]
  - Gait disturbance [Not Recovered/Not Resolved]
  - Apathy [Not Recovered/Not Resolved]
  - Gastrointestinal disorder [Not Recovered/Not Resolved]
  - Balance disorder [Not Recovered/Not Resolved]
  - Hordeolum [Recovered/Resolved]
  - Coordination abnormal [Not Recovered/Not Resolved]
  - Asthenia [Not Recovered/Not Resolved]
  - Fatigue [Recovered/Resolved]
  - Malaise [Not Recovered/Not Resolved]
  - Intraocular pressure increased [Recovered/Resolved]
  - Headache [Recovered/Resolved]
  - Haematoma [Recovered/Resolved]
  - COVID-19 [Recovered/Resolved]
  - Pain [Not Recovered/Not Resolved]
  - Blepharitis [Recovered/Resolved]
  - Staphylococcal infection [Not Recovered/Not Resolved]
  - Dyspepsia [Recovering/Resolving]

NARRATIVE: CASE EVENT DATE: 20190814
